FAERS Safety Report 4864893-6 (Version None)
Quarter: 2005Q4

REPORT INFORMATION
  Report Type: 
  Country: None (occurrence: None)
  Receive Date: 20051201
  Receipt Date: 20050812
  Transmission Date: 20060501
  Serious: No
  Sender: FDA-Public Use
  Company Number: 2005PV001120

PATIENT
  Age: 61 Year
  Sex: Female
  Weight: 117.9352 kg

DRUGS (9)
  1. BYETTA [Suspect]
     Indication: DIABETES MELLITUS NON-INSULIN-DEPENDENT
     Dosage: 5 MCG; BID; SC
     Route: 058
     Dates: start: 20050718
  2. BIAXIN [Suspect]
     Indication: SINUSITIS
     Dosage: 500 MG; BID; PO
     Route: 048
     Dates: start: 20050805, end: 20050810
  3. AMARYL [Concomitant]
  4. GLUCOPHAGE [Concomitant]
  5. ACCUPRIL [Concomitant]
  6. ALLEGRA [Concomitant]
  7. SYNTHROID [Concomitant]
  8. ADVAIR DISKUS 250/50 [Concomitant]
  9. ALBUTEROL [Concomitant]

REACTIONS (8)
  - ABDOMINAL DISTENSION [None]
  - CONSTIPATION [None]
  - COUGH [None]
  - DIARRHOEA [None]
  - DYSPNOEA [None]
  - FLATULENCE [None]
  - NAUSEA [None]
  - SINUSITIS [None]
